FAERS Safety Report 25207162 (Version 1)
Quarter: 2025Q2

REPORT INFORMATION
  Report Type: Spontaneous
  Country: CN (occurrence: CN)
  Receive Date: 20250417
  Receipt Date: 20250417
  Transmission Date: 20250717
  Serious: Yes (Other)
  Sender: ORGANON
  Company Number: CN-ORGANON-O2504CHN001323

PATIENT
  Age: 43 Year
  Sex: Male

DRUGS (2)
  1. SINGULAIR [Suspect]
     Active Substance: MONTELUKAST SODIUM
     Indication: Rhinitis allergic
     Route: 048
     Dates: start: 2024, end: 2024
  2. SINGULAIR [Suspect]
     Active Substance: MONTELUKAST SODIUM
     Indication: Cough
     Route: 048
     Dates: start: 20250404, end: 20250407

REACTIONS (18)
  - Pulmonary fibrosis [Unknown]
  - Pneumonitis [Unknown]
  - Insomnia [Unknown]
  - Sinus tachycardia [Recovered/Resolved]
  - Sinus tachycardia [Unknown]
  - Abdominal discomfort [Unknown]
  - Mental disorder [Unknown]
  - Nervous system disorder [Unknown]
  - Product use in unapproved indication [Unknown]
  - Pleural thickening [Unknown]
  - Lung opacity [Unknown]
  - Blood pressure increased [Unknown]
  - Fear of death [Unknown]
  - Chest pain [Unknown]
  - Pulmonary mass [Unknown]
  - Palpitations [Unknown]
  - Chest discomfort [Unknown]
  - Hypertension [Unknown]

NARRATIVE: CASE EVENT DATE: 20240101
